FAERS Safety Report 25311052 (Version 1)
Quarter: 2025Q2

REPORT INFORMATION
  Report Type: Report from Study
  Country: CA (occurrence: CA)
  Receive Date: 20250514
  Receipt Date: 20250514
  Transmission Date: 20250717
  Serious: Yes (Hospitalization, Other)
  Sender: CELLTRION
  Company Number: CA-CELLTRION INC.-2024CA000226

PATIENT

DRUGS (16)
  1. ADALIMUMAB-AATY [Suspect]
     Active Substance: ADALIMUMAB-AATY
     Indication: Crohn^s disease
     Route: 058
  2. ADALIMUMAB-AATY [Suspect]
     Active Substance: ADALIMUMAB-AATY
     Route: 058
  3. ADALIMUMAB-AATY [Suspect]
     Active Substance: ADALIMUMAB-AATY
     Dosage: WEEK 4: 40 MG, 1 EVERY 2 WEEKS
     Route: 058
  4. ADALIMUMAB-AATY [Suspect]
     Active Substance: ADALIMUMAB-AATY
     Dosage: 40 MG, EVERY 2 WEEKS/ 1 EVERY 2 WEEKS
     Route: 058
     Dates: start: 20231229
  5. ADALIMUMAB-AATY [Suspect]
     Active Substance: ADALIMUMAB-AATY
     Dosage: 40 MG, EVERY 2 WEEKS/ 1 EVERY 2 WEEKS
     Route: 058
     Dates: start: 20240209
  6. ADALIMUMAB-AATY [Suspect]
     Active Substance: ADALIMUMAB-AATY
     Dosage: 40 MG, EVERY 1 WEEKS/ 1 EVERY 1 WEEK
     Route: 058
     Dates: start: 20240216
  7. PREDNISONE [Concomitant]
     Active Substance: PREDNISONE
     Dates: start: 20231214
  8. AMLODIPINE [Concomitant]
     Active Substance: AMLODIPINE BESYLATE
     Route: 065
  9. MEDROXYPROGESTERONE ACETATE [Concomitant]
     Active Substance: MEDROXYPROGESTERONE ACETATE
  10. CENTRUM FORTE [Concomitant]
  11. BISOPROLOL [Concomitant]
     Active Substance: BISOPROLOL
  12. CAL D [CALCIUM CARBONATE] [Concomitant]
  13. DULOXETINE [Concomitant]
     Active Substance: DULOXETINE
  14. EZETIMIBE [Concomitant]
     Active Substance: EZETIMIBE
  15. PRAVASTATIN [Concomitant]
     Active Substance: PRAVASTATIN
  16. DULOXETINE [Concomitant]
     Active Substance: DULOXETINE
     Route: 065

REACTIONS (9)
  - Joint swelling [Not Recovered/Not Resolved]
  - Myocardial infarction [Not Recovered/Not Resolved]
  - Illness [Not Recovered/Not Resolved]
  - Asthenia [Not Recovered/Not Resolved]
  - Pain [Not Recovered/Not Resolved]
  - Nausea [Not Recovered/Not Resolved]
  - Fatigue [Not Recovered/Not Resolved]
  - Accidental overdose [Not Recovered/Not Resolved]
  - Loss of therapeutic response [Not Recovered/Not Resolved]

NARRATIVE: CASE EVENT DATE: 20240102
